FAERS Safety Report 8468913-1 (Version None)
Quarter: 2012Q2

REPORT INFORMATION
  Report Type: 
  Country: None (occurrence: None)
  Receive Date: 20120626
  Receipt Date: 20100909
  Transmission Date: 20120825
  Serious: Yes (Other)
  Sender: FDA-Public Use
  Company Number: GR-ROCHE-726919

PATIENT
  Age: 64 Year
  Sex: Female

DRUGS (2)
  1. BONIVA [Suspect]
     Indication: OSTEOPOROSIS
     Route: 048
  2. LEVOTHYROXINE [Concomitant]
     Indication: HYPOTHYROIDISM
     Route: 048

REACTIONS (1)
  - DENTAL FISTULA [None]
